FAERS Safety Report 6411657-8 (Version None)
Quarter: 2009Q4

REPORT INFORMATION
  Report Type: 
  Country: None (occurrence: None)
  Receive Date: 20091023
  Receipt Date: 20091014
  Transmission Date: 20100525
  Serious: Yes (Hospitalization, Other)
  Sender: FDA-Public Use
  Company Number: BR-ROCHE-657069

PATIENT
  Age: 53 Year
  Sex: Male
  Weight: 70.8 kg

DRUGS (4)
  1. FUZEON [Suspect]
     Dosage: DOSE: 90 MG/ ML
     Route: 058
     Dates: start: 20090827, end: 20091001
  2. RALTEGRAVIR [Suspect]
     Route: 065
     Dates: start: 20090827, end: 20091001
  3. TENOFOVIR [Suspect]
     Route: 065
     Dates: start: 20090827, end: 20091001
  4. LAMIVUDINE [Suspect]
     Route: 065
     Dates: start: 20090827, end: 20091001

REACTIONS (4)
  - CD4 LYMPHOCYTES DECREASED [None]
  - PAIN [None]
  - PLATELET COUNT DECREASED [None]
  - VIRAL LOAD INCREASED [None]
